FAERS Safety Report 8132490 (Version 3)
Quarter: 2013Q3

REPORT INFORMATION
  Report Type: Spontaneous
  Country: US (occurrence: US)
  Receive Date: 20110913
  Receipt Date: 20130903
  Transmission Date: 20140515
  Serious: Yes (Death, Hospitalization)
  Sender: FDA-Public Use
  Company Number: US-GENZYME-CERZ-1002234

PATIENT
  Age: 69 Year
  Sex: Female
  Weight: 47 kg

DRUGS (2)
  1. CEREZYME [Suspect]
     Indication: GAUCHER^S DISEASE
     Dosage: 30 U/KG, Q2W
     Route: 042
     Dates: start: 19921218
  2. CEREZYME [Suspect]
     Dosage: 35 U/KG, Q2W
     Route: 042
     Dates: start: 20050901

REACTIONS (3)
  - Myocardial infarction [Fatal]
  - Respiratory arrest [Unknown]
  - Pulse absent [Unknown]
